FAERS Safety Report 10005461 (Version 2)
Quarter: 2014Q2

REPORT INFORMATION
  Report Type: Report from Study
  Country: VN (occurrence: VN)
  Receive Date: 20140313
  Receipt Date: 20140414
  Transmission Date: 20141212
  Serious: Yes (Other)
  Sender: FDA-Public Use
  Company Number: VN-ROCHE-1361845

PATIENT
  Age: 55 Year
  Sex: Male

DRUGS (1)
  1. PEGASYS [Suspect]
     Indication: CHRONIC HEPATITIS C
     Route: 065
     Dates: start: 2009, end: 2010

REACTIONS (1)
  - Hepatitis C [Unknown]
